FAERS Safety Report 10997581 (Version 1)
Quarter: 2015Q2

REPORT INFORMATION
  Report Type: Spontaneous
  Country: US (occurrence: US)
  Receive Date: 20150408
  Receipt Date: 20150408
  Transmission Date: 20150821
  Serious: No
  Sender: FDA-Public Use
  Company Number: US-PFIZER INC-2015115458

PATIENT
  Age: 49 Year
  Sex: Male
  Weight: 82 kg

DRUGS (2)
  1. ALAVERT ALLERGY [Suspect]
     Active Substance: LORATADINE
     Indication: HYPERSENSITIVITY
     Dosage: UNK
  2. ALAVERT ALLERGY [Suspect]
     Active Substance: LORATADINE
     Dosage: 10 MG, 1X/DAY (ONCE A YEAR FOR ABOUT 6 WEEKS)
     Route: 048
     Dates: start: 20150318

REACTIONS (1)
  - Middle insomnia [Unknown]
